FAERS Safety Report 22300657 (Version 2)
Quarter: 2023Q2

REPORT INFORMATION
  Report Type: Spontaneous
  Country: US (occurrence: US)
  Receive Date: 20230509
  Receipt Date: 20230511
  Transmission Date: 20230722
  Serious: Yes (Life-Threatening, Hospitalization, Other)
  Sender: FDA-Public Use
  Company Number: US-009507513-2305USA000690

PATIENT
  Age: 4 Year
  Sex: Male

DRUGS (2)
  1. BRIDION [Suspect]
     Active Substance: SUGAMMADEX
     Dosage: 4 MG/KG
     Dates: start: 20230428
  2. ROCURONIUM [Concomitant]
     Active Substance: ROCURONIUM BROMIDE

REACTIONS (1)
  - Bronchospasm [Recovered/Resolved]

NARRATIVE: CASE EVENT DATE: 20230428
